FAERS Safety Report 10431178 (Version 1)
Quarter: 2014Q3

REPORT INFORMATION
  Report Type: Spontaneous
  Country: US (occurrence: None)
  Receive Date: 20140902
  Receipt Date: 20140902
  Transmission Date: 20150326
  Serious: Yes (Other)
  Sender: FDA-Public Use
  Company Number: 2014SA116496

PATIENT
  Sex: Male

DRUGS (1)
  1. UNISOM SLEEPGELS NIGHTTIME SLEEP-AID [Suspect]
     Active Substance: DIPHENHYDRAMINE HYDROCHLORIDE
     Dates: start: 20140518, end: 20140824

REACTIONS (8)
  - Abnormal dreams [None]
  - Periorbital contusion [None]
  - Mental impairment [None]
  - Somnambulism [None]
  - Thinking abnormal [None]
  - Abnormal behaviour [None]
  - Muscle twitching [None]
  - Bite [None]
